FAERS Safety Report 6282340-7 (Version None)
Quarter: 2009Q3

REPORT INFORMATION
  Report Type: 
  Country: None (occurrence: None)
  Receive Date: 20090722
  Receipt Date: 20090722
  Transmission Date: 20100115
  Serious: Yes (Other)
  Sender: FDA-Public Use
  Company Number: None

PATIENT
  Age: 51 Year
  Sex: Female
  Weight: 60.782 kg

DRUGS (2)
  1. AVELOX [Suspect]
     Indication: CONDITION AGGRAVATED
     Dosage: 400 MG 1/2 TWICE A DAY
     Dates: start: 20090713, end: 20090719
  2. AVELOX [Suspect]
     Indication: PNEUMONIA
     Dosage: 400 MG 1/2 TWICE A DAY
     Dates: start: 20090713, end: 20090719

REACTIONS (2)
  - DECREASED ACTIVITY [None]
  - TENDONITIS [None]
